FAERS Safety Report 4643083-6 (Version None)
Quarter: 2005Q2

REPORT INFORMATION
  Report Type: 
  Country: None (occurrence: None)
  Receive Date: 20050421
  Receipt Date: 20050405
  Transmission Date: 20051028
  Serious: Yes (Other)
  Sender: FDA-Public Use
  Company Number: PHHO2005DE05464

PATIENT
  Age: 88 Year
  Sex: Female
  Weight: 50.0318 kg

DRUGS (2)
  1. LUCENTIS [Suspect]
     Indication: MACULAR DEGENERATION
     Dosage: 0.5 MG DAILY EY
     Dates: start: 20050105, end: 20050105
  2. VISUDYNE [Suspect]
     Indication: MACULAR DEGENERATION
     Dates: start: 20050105, end: 20050105

REACTIONS (4)
  - DETACHMENT OF RETINAL PIGMENT EPITHELIUM [None]
  - DISEASE PROGRESSION [None]
  - MACULAR DEGENERATION [None]
  - VISUAL ACUITY REDUCED [None]
